FAERS Safety Report 5968013-6 (Version None)
Quarter: 2008Q4

REPORT INFORMATION
  Report Type: 
  Country: None (occurrence: None)
  Receive Date: 20081121
  Receipt Date: 20081121
  Transmission Date: 20090506
  Serious: No
  Sender: FDA-Public Use
  Company Number: None

PATIENT
  Sex: Female
  Weight: 53.978 kg

DRUGS (1)
  1. LEVOPHED [Suspect]
     Indication: HYPOTENSION
     Dates: start: 20081117, end: 20081117

REACTIONS (2)
  - INJECTION SITE EXTRAVASATION [None]
  - INJECTION SITE NECROSIS [None]
